FAERS Safety Report 9828018 (Version 1)
Quarter: 2014Q1

REPORT INFORMATION
  Report Type: Spontaneous
  Country: US (occurrence: US)
  Receive Date: 20140117
  Receipt Date: 20140117
  Transmission Date: 20141002
  Serious: No
  Sender: FDA-Public Use
  Company Number: US-B.I. PHARMACEUTICALS,INC./RIDGEFIELD-2014-BI-00933BP

PATIENT
  Age: 60 Year
  Sex: Male

DRUGS (1)
  1. VIRAMUNE TABLETS [Suspect]
     Indication: HIV INFECTION
     Dosage: 400 MG
     Route: 048
     Dates: start: 2006

REACTIONS (2)
  - Medication residue present [Unknown]
  - Product quality issue [Unknown]
